FAERS Safety Report 8593674 (Version 3)
Quarter: 2014Q1

REPORT INFORMATION
  Report Type: Spontaneous
  Country: US (occurrence: US)
  Receive Date: 20120604
  Receipt Date: 20140130
  Transmission Date: 20141002
  Serious: Yes (Hospitalization)
  Sender: FDA-Public Use
  Company Number: US-ASTRAZENECA-2012SE35017

PATIENT
  Age: 60 Year
  Sex: Female

DRUGS (21)
  1. NEXIUM [Suspect]
     Indication: HERNIA
     Route: 048
  2. NEXIUM [Suspect]
     Indication: DYSPEPSIA
     Route: 048
  3. NEXIUM [Suspect]
     Indication: HERNIA
     Route: 048
  4. NEXIUM [Suspect]
     Indication: DYSPEPSIA
     Route: 048
  5. NEXIUM [Suspect]
     Indication: HERNIA
     Route: 048
     Dates: start: 20091123
  6. NEXIUM [Suspect]
     Indication: DYSPEPSIA
     Route: 048
     Dates: start: 20091123
  7. OCT PREVACID [Concomitant]
     Route: 048
     Dates: start: 2002, end: 2005
  8. TUMS [Concomitant]
     Dates: start: 2002, end: 2005
  9. ALKA-SELTZER [Concomitant]
     Dates: start: 2002, end: 2005
  10. SYMBICORT [Concomitant]
     Dosage: 160 MG 4-5 MEG/INH 2 PUFFS 2 TIMES PER DAY
     Dates: start: 20100629
  11. PROAIR HFA [Concomitant]
     Dosage: 90 MEG/INH 2 PUFFS
  12. VITAMIN D/VITAMIN D DETIA [Concomitant]
     Dosage: 50,000 A WEEK FOR 8 WEEKS
  13. CRESTOR [Concomitant]
     Indication: BLOOD CHOLESTEROL ABNORMAL
  14. CRESTOR [Concomitant]
     Indication: BLOOD CHOLESTEROL ABNORMAL
     Route: 048
     Dates: start: 20100709
  15. ZOLPIDEM [Concomitant]
     Route: 048
     Dates: start: 20091007
  16. PROMETHAZINE [Concomitant]
     Dosage: 25 MG, EVERY 6 HRS AS NEEDED
     Route: 048
     Dates: start: 20091015
  17. HYDROCODONE/APAP [Concomitant]
     Dosage: 10MG/660MG, EVERY 6 HRS AS NEEDED
     Route: 048
     Dates: start: 20091214
  18. OXYCODONE [Concomitant]
     Dosage: 30MG, 1 TO 2 TAB EVERY 4 TO  6 HRS AS NEEDED
     Route: 048
     Dates: start: 20091217
  19. PROCHLORPERAZINE [Concomitant]
     Dosage: 10MG, EVERY  6 HRS AS NEEDED
     Route: 048
     Dates: start: 20091218
  20. TANNATE [Concomitant]
     Dosage: 1 TO 2 TES EVERY 12 HRS AS NEEDED
     Route: 048
     Dates: start: 20091221
  21. METHYLPREDNISOLONE [Concomitant]
     Dates: start: 20100701

REACTIONS (14)
  - Post procedural complication [Unknown]
  - Osteoporosis [Unknown]
  - Multiple fractures [Unknown]
  - Carpal tunnel syndrome [Unknown]
  - Bone disorder [Unknown]
  - Arthritis [Unknown]
  - Cataract [Unknown]
  - Chronic obstructive pulmonary disease [Unknown]
  - Vitamin D deficiency [Unknown]
  - Osteopenia [Unknown]
  - Scoliosis [Unknown]
  - Spinal osteoarthritis [Unknown]
  - Intervertebral disc degeneration [Unknown]
  - Foramen magnum stenosis [Unknown]
